FAERS Safety Report 5118542-2 (Version None)
Quarter: 2006Q4

REPORT INFORMATION
  Report Type: 
  Country: None (occurrence: None)
  Receive Date: 20061002
  Receipt Date: 20060912
  Transmission Date: 20070319
  Serious: Yes (Hospitalization)
  Sender: FDA-Public Use
  Company Number: US-AMGEN-US193265

PATIENT
  Sex: Female

DRUGS (5)
  1. SENSIPAR [Suspect]
     Indication: HYPERPARATHYROIDISM SECONDARY
     Dates: start: 20050601, end: 20060908
  2. NORVASC [Concomitant]
  3. TOPROL-XL [Concomitant]
  4. LASIX [Concomitant]
  5. INSULIN [Concomitant]

REACTIONS (6)
  - ASTHENIA [None]
  - BLOOD PHOSPHORUS DECREASED [None]
  - FATIGUE [None]
  - HYPOCALCAEMIA [None]
  - PERITONITIS [None]
  - VISION BLURRED [None]
